FAERS Safety Report 11630615 (Version 2)
Quarter: 2015Q4

REPORT INFORMATION
  Report Type: Spontaneous
  Country: CN (occurrence: CN)
  Receive Date: 20151014
  Receipt Date: 20151021
  Transmission Date: 20160304
  Serious: No
  Sender: FDA-Public Use
  Company Number: CN-JNJFOC-20151005555

PATIENT

DRUGS (2)
  1. FENTANYL TRANSDERMAL SYSTEM [Suspect]
     Active Substance: FENTANYL
     Indication: CANCER PAIN
     Route: 048
  2. FENTANYL TRANSDERMAL SYSTEM [Suspect]
     Active Substance: FENTANYL
     Indication: CANCER PAIN
     Route: 048

REACTIONS (11)
  - Headache [Unknown]
  - Nonspecific reaction [Unknown]
  - Constipation [Unknown]
  - Dyspnoea [Unknown]
  - Application site reaction [Recovered/Resolved]
  - Decreased appetite [Unknown]
  - Diarrhoea [Unknown]
  - Incorrect route of drug administration [Unknown]
  - Hyperhidrosis [Unknown]
  - Nausea [Unknown]
  - Fatigue [Unknown]
